FAERS Safety Report 5356754-3 (Version None)
Quarter: 2007Q2

REPORT INFORMATION
  Report Type: 
  Country: None (occurrence: None)
  Receive Date: 20070612
  Receipt Date: 20070529
  Transmission Date: 20071010
  Serious: Yes (Death, Other)
  Sender: FDA-Public Use
  Company Number: 2005BI022386

PATIENT
  Sex: Female
  Weight: 58.0604 kg

DRUGS (6)
  1. AVONEX [Suspect]
     Indication: MULTIPLE SCLEROSIS
     Dosage: 30 UG; QW; IM
     Route: 030
     Dates: start: 20000101, end: 20040101
  2. AVONEX [Suspect]
     Indication: MULTIPLE SCLEROSIS
     Dosage: 30 UG; QW; IM
     Route: 030
     Dates: start: 20040101, end: 20051125
  3. AVONEX [Suspect]
     Indication: MULTIPLE SCLEROSIS
     Dosage: 15 UG; QW; IM
     Route: 030
     Dates: start: 20051209, end: 20051216
  4. AVONEX [Suspect]
     Indication: MULTIPLE SCLEROSIS
     Dosage: 30 UG; QW; IM
     Route: 030
     Dates: start: 20051223
  5. DITROPAN [Concomitant]
  6. ACTONEL [Concomitant]

REACTIONS (14)
  - ABDOMINAL PAIN [None]
  - ADENOCARCINOMA [None]
  - ARTHRITIS [None]
  - BARRETT'S OESOPHAGUS [None]
  - COLLAPSE OF LUNG [None]
  - COLON CANCER METASTATIC [None]
  - FEELING COLD [None]
  - GASTRITIS [None]
  - INFLUENZA LIKE ILLNESS [None]
  - METASTASES TO LUNG [None]
  - MUSCLE SPASMS [None]
  - PLEURITIC PAIN [None]
  - PRURITUS [None]
  - WEIGHT DECREASED [None]
